FAERS Safety Report 7184178-5 (Version None)
Quarter: 2010Q4

REPORT INFORMATION
  Report Type: 
  Country: None (occurrence: None)
  Receive Date: 20101123
  Receipt Date: 20100825
  Transmission Date: 20110411
  Serious: No
  Sender: FDA-Public Use
  Company Number: 017813

PATIENT
  Age: 58 Year
  Sex: Female

DRUGS (1)
  1. CIMZIA [Suspect]
     Dosage: (SUBCUTANEOUS)
     Route: 058
     Dates: start: 20100518

REACTIONS (2)
  - BLOOD CREATINE PHOSPHOKINASE INCREASED [None]
  - MUSCULAR WEAKNESS [None]
